FAERS Safety Report 10205351 (Version 11)
Quarter: 2020Q4

REPORT INFORMATION
  Report Type: Spontaneous
  Country: US (occurrence: US)
  Receive Date: 20140529
  Receipt Date: 20201012
  Transmission Date: 20210113
  Serious: Yes (Hospitalization)
  Sender: FDA-Public Use
  Company Number: US-SA-2014SA042032

PATIENT

DRUGS (19)
  1. LANTUS [Suspect]
     Active Substance: INSULIN GLARGINE
     Indication: TYPE 1 DIABETES MELLITUS
     Dosage: UNK
     Route: 051
     Dates: start: 2000
  2. LANTUS [Suspect]
     Active Substance: INSULIN GLARGINE
     Dosage: 70 DF, HS
     Route: 051
     Dates: start: 201403, end: 201403
  3. LANTUS [Suspect]
     Active Substance: INSULIN GLARGINE
     Dosage: UNK UNK,QD
     Route: 051
  4. NOVOLOG [Suspect]
     Active Substance: INSULIN ASPART
     Dosage: 21 DF,QD
     Route: 065
  5. LANTUS [Suspect]
     Active Substance: INSULIN GLARGINE
     Dosage: 70 DF,QD
     Route: 051
  6. LANTUS [Suspect]
     Active Substance: INSULIN GLARGINE
     Dosage: UNK UNK,BID
     Route: 051
  7. LANTUS [Suspect]
     Active Substance: INSULIN GLARGINE
     Dosage: UNK UNK,BID
     Route: 051
  8. LANTUS [Suspect]
     Active Substance: INSULIN GLARGINE
     Dosage: UNK UNK,QD
     Route: 051
  9. LANTUS [Suspect]
     Active Substance: INSULIN GLARGINE
     Dosage: 6 UNITS IN AM AND 26 UNITS AT NIGHT
     Route: 065
  10. LANTUS [Suspect]
     Active Substance: INSULIN GLARGINE
     Dosage: 70 DF,QD
     Route: 051
  11. NOVOLOG [Suspect]
     Active Substance: INSULIN ASPART
     Indication: DIABETES MELLITUS
     Dosage: 20 DF,QD
     Route: 065
  12. LANTUS [Suspect]
     Active Substance: INSULIN GLARGINE
     Dosage: 70 DF,QD
     Route: 051
     Dates: start: 201401
  13. NOVOLOG [Suspect]
     Active Substance: INSULIN ASPART
     Dosage: UNK UNK,QD
     Route: 065
  14. LIPITOR [Concomitant]
     Active Substance: ATORVASTATIN CALCIUM
     Indication: BLOOD CHOLESTEROL
     Dosage: 20 MG, QD
     Route: 065
  15. LANTUS [Suspect]
     Active Substance: INSULIN GLARGINE
     Dosage: UNK UNK,QD
     Route: 051
  16. LANTUS [Suspect]
     Active Substance: INSULIN GLARGINE
     Dosage: 30 DF,QD
     Route: 051
  17. LANTUS [Suspect]
     Active Substance: INSULIN GLARGINE
     Dosage: UNK UNK,QD
     Route: 051
  18. NAPROXEN. [Concomitant]
     Active Substance: NAPROXEN
     Indication: PAIN
     Dosage: 500 MG,BID
     Route: 065
  19. LANTUS [Suspect]
     Active Substance: INSULIN GLARGINE
     Dosage: UNK UNK,QD
     Route: 051

REACTIONS (8)
  - Blood glucose fluctuation [Not Recovered/Not Resolved]
  - Inappropriate schedule of product administration [Unknown]
  - Product quality issue [Not Recovered/Not Resolved]
  - Hospitalisation [Unknown]
  - Blood glucose abnormal [Unknown]
  - Product storage error [Not Recovered/Not Resolved]
  - Blood glucose increased [Not Recovered/Not Resolved]
  - Drug ineffective [Not Recovered/Not Resolved]

NARRATIVE: CASE EVENT DATE: 201403
